FAERS Safety Report 11661882 (Version 1)
Quarter: 2015Q4

REPORT INFORMATION
  Report Type: Spontaneous
  Country: JP (occurrence: JP)
  Receive Date: 20151026
  Receipt Date: 20151026
  Transmission Date: 20160304
  Serious: Yes (Death, Hospitalization)
  Sender: FDA-Public Use
  Company Number: PHJP1997JP001576

PATIENT
  Age: 72 Year
  Sex: Male

DRUGS (2)
  1. LASIX [Suspect]
     Active Substance: FUROSEMIDE
     Indication: PRODUCT USED FOR UNKNOWN INDICATION
     Dosage: UNK UKN, UNK
  2. VOLTAREN [Suspect]
     Active Substance: DICLOFENAC SODIUM
     Indication: PRODUCT USED FOR UNKNOWN INDICATION
     Dosage: 50 MG, UNK
     Dates: start: 19970120, end: 19970120

REACTIONS (14)
  - Multi-organ failure [Fatal]
  - Blood pressure decreased [Fatal]
  - Gastroenteritis [Unknown]
  - Cyanosis [Fatal]
  - Diarrhoea [Unknown]
  - Ventricular fibrillation [Unknown]
  - Seizure [Unknown]
  - Ventricular extrasystoles [None]
  - Vomiting [Not Recovered/Not Resolved]
  - Respiratory arrest [Unknown]
  - Nausea [Recovered/Resolved]
  - Hypoaesthesia [Unknown]
  - Pharyngeal disorder [Unknown]
  - Pyrexia [Unknown]

NARRATIVE: CASE EVENT DATE: 19970121
